FAERS Safety Report 16270508 (Version 3)
Quarter: 2020Q2

REPORT INFORMATION
  Report Type: Spontaneous
  Country: US (occurrence: US)
  Receive Date: 20190503
  Receipt Date: 20200406
  Transmission Date: 20200713
  Serious: Yes (Other)
  Sender: FDA-Public Use
  Company Number: US-GILEAD-2019-0405403

PATIENT
  Sex: Male

DRUGS (26)
  1. CIALIS [Concomitant]
     Active Substance: TADALAFIL
  2. TRETINOIN. [Concomitant]
     Active Substance: TRETINOIN
  3. AMMONIUM LACTATE. [Concomitant]
     Active Substance: AMMONIUM LACTATE
  4. GAVILYTE G [Concomitant]
     Active Substance: POLYETHYLENE GLYCOL 3350\POTASSIUM CHLORIDE\SODIUM BICARBONATE\SODIUM CHLORIDE\SODIUM SULFATE ANHYDROUS
  5. PROVENTIL HFA [Concomitant]
     Active Substance: ALBUTEROL SULFATE
  6. MULTIVITAMINS [VITAMINS NOS] [Concomitant]
     Active Substance: VITAMINS
  7. VITAMIN D3 [Concomitant]
     Active Substance: CHOLECALCIFEROL
  8. VITAMIN D2 [Concomitant]
     Active Substance: ERGOCALCIFEROL
  9. AMOXICILLIN. [Concomitant]
     Active Substance: AMOXICILLIN
  10. ODEFSEY [Concomitant]
     Active Substance: EMTRICITABINE\RILPIVIRINE HYDROCHLORIDE\TENOFOVIR ALAFENAMIDE FUMARATE
  11. VIAGRA [Concomitant]
     Active Substance: SILDENAFIL CITRATE
  12. IBUPROFEN. [Concomitant]
     Active Substance: IBUPROFEN
  13. CLINDAMYCIN. [Concomitant]
     Active Substance: CLINDAMYCIN
  14. PROAIR HFA [Concomitant]
     Active Substance: ALBUTEROL SULFATE
  15. JUBLIA [Concomitant]
     Active Substance: EFINACONAZOLE
  16. VITAMIN B COMPLEX NOS [Concomitant]
     Active Substance: CYANOCOBALAMIN\PYRIDOXINE HYDROCHLORIDE\RIBOFLAVIN\SODIUM PANTOTHENATE\THIAMINE HYDROCHLORIDE\VITAMIN B COMPLEX
  17. BISACODYL. [Concomitant]
     Active Substance: BISACODYL
  18. TERBINAFINE. [Concomitant]
     Active Substance: TERBINAFINE
  19. ESCITALOPRAM [Concomitant]
     Active Substance: ESCITALOPRAM OXALATE
  20. KETOCONAZOLE. [Concomitant]
     Active Substance: KETOCONAZOLE
  21. ACETAMINOPHEN + COD. PHOSP. [Concomitant]
     Active Substance: ACETAMINOPHEN\CODEINE PHOSPHATE
  22. ATRIPLA [Suspect]
     Active Substance: EFAVIRENZ\EMTRICITABINE\TENOFOVIR DISOPROXIL FUMARATE
     Indication: HIV INFECTION
     Dosage: UNK
     Route: 048
     Dates: start: 2006, end: 201610
  23. AZITHROMYCIN ANHYDROUS. [Concomitant]
     Active Substance: AZITHROMYCIN ANHYDROUS
  24. PREDNISONE. [Concomitant]
     Active Substance: PREDNISONE
  25. METHYLPHENIDATE. [Concomitant]
     Active Substance: METHYLPHENIDATE
  26. CICLOPIROX. [Concomitant]
     Active Substance: CICLOPIROX

REACTIONS (9)
  - Emotional distress [Unknown]
  - Anxiety [Unknown]
  - Economic problem [Unknown]
  - Fracture [Recovered/Resolved]
  - Bone density decreased [Not Recovered/Not Resolved]
  - Bone loss [Unknown]
  - Pain [Unknown]
  - Anhedonia [Unknown]
  - Tooth loss [Recovered/Resolved]

NARRATIVE: CASE EVENT DATE: 2008
